FAERS Safety Report 7789417-5 (Version None)
Quarter: 2011Q3

REPORT INFORMATION
  Report Type: 
  Country: None (occurrence: None)
  Receive Date: 20110930
  Receipt Date: 20110923
  Transmission Date: 20111222
  Serious: Yes (Other)
  Sender: FDA-Public Use
  Company Number: GB-PURDUE-USA-2011-0075163

PATIENT
  Age: 63 Year
  Sex: Male

DRUGS (10)
  1. SALMETEROL [Concomitant]
     Dosage: UNK
     Dates: start: 20110526, end: 20110625
  2. ACETAMINOPHEN AND CODEINE PHOSPHATE [Concomitant]
     Indication: PRODUCT USED FOR UNKNOWN INDICATION
     Dosage: UNK
     Dates: start: 20110907, end: 20110914
  3. BENDROFLUMETHIAZIDE [Concomitant]
     Indication: PRODUCT USED FOR UNKNOWN INDICATION
     Dosage: UNK
     Dates: start: 20110525, end: 20110818
  4. ALBUTEROL [Concomitant]
     Indication: PRODUCT USED FOR UNKNOWN INDICATION
     Dosage: UNK
     Dates: start: 20110526
  5. AMITRIPTYLINE HYDROCHLORIDE [Concomitant]
     Indication: PRODUCT USED FOR UNKNOWN INDICATION
     Dosage: UNK
     Dates: start: 20110909
  6. ACETAMINOPHEN [Concomitant]
     Indication: PRODUCT USED FOR UNKNOWN INDICATION
     Dosage: UNK
     Dates: start: 20110913
  7. DICLOFENAC SODIUM [Concomitant]
     Indication: PRODUCT USED FOR UNKNOWN INDICATION
     Dosage: UNK
     Dates: start: 20110907
  8. PERINDOPRIL ERBUMINE [Concomitant]
     Indication: PRODUCT USED FOR UNKNOWN INDICATION
     Dosage: UNK
     Dates: start: 20110331, end: 20110629
  9. TRAMADOL HCL [Suspect]
     Indication: SCIATICA
     Dosage: UNK, SINGLE
     Dates: start: 20110914
  10. TRAMADOL HCL [Concomitant]
     Indication: PRODUCT USED FOR UNKNOWN INDICATION
     Dosage: UNK
     Dates: start: 20110913

REACTIONS (3)
  - DIZZINESS [None]
  - PALPITATIONS [None]
  - PRURITUS [None]
